FAERS Safety Report 8184533-0 (Version None)
Quarter: 2012Q1

REPORT INFORMATION
  Report Type: 
  Country: None (occurrence: None)
  Receive Date: 20120305
  Receipt Date: 20120229
  Transmission Date: 20120608
  Serious: Yes (Disabling, Other)
  Sender: FDA-Public Use
  Company Number: RO-BRACCO-000013

PATIENT
  Age: 51 Year
  Sex: Female
  Weight: 68 kg

DRUGS (2)
  1. MULTIHANCE [Suspect]
     Indication: NUCLEAR MAGNETIC RESONANCE IMAGING
     Dosage: BETWEEN 7 AND 10 ML ADMINISTERED
     Dates: start: 20111012, end: 20111012
  2. MULTIHANCE [Suspect]
     Indication: ABDOMINAL PAIN
     Dosage: BETWEEN 7 AND 10 ML ADMINISTERED
     Dates: start: 20111012, end: 20111012

REACTIONS (13)
  - INJECTION SITE PAIN [None]
  - CHEST DISCOMFORT [None]
  - PARAESTHESIA [None]
  - INFLAMMATION [None]
  - SKIN DEPIGMENTATION [None]
  - SUBCUTANEOUS NODULE [None]
  - HAEMATOMA [None]
  - MYOSCLEROSIS [None]
  - DYSPNOEA [None]
  - INJECTION SITE HAEMORRHAGE [None]
  - HEADACHE [None]
  - BURNING SENSATION [None]
  - SKIN DISORDER [None]
